FAERS Safety Report 19868461 (Version 2)
Quarter: 2021Q4

REPORT INFORMATION
  Report Type: Spontaneous
  Country: BR (occurrence: BR)
  Receive Date: 20210921
  Receipt Date: 20211203
  Transmission Date: 20220304
  Serious: Yes (Other)
  Sender: FDA-Public Use
  Company Number: BR-BIOMARINAP-BR-2021-138610

PATIENT
  Age: 3 Year
  Sex: Male

DRUGS (1)
  1. ALDURAZYME [Suspect]
     Active Substance: LARONIDASE
     Indication: Mucopolysaccharidosis I
     Route: 042

REACTIONS (2)
  - Respiratory distress [Unknown]
  - Urticaria [Unknown]

NARRATIVE: CASE EVENT DATE: 20200101
